FAERS Safety Report 9736390 (Version 2)
Quarter: 2013Q4

REPORT INFORMATION
  Report Type: Spontaneous
  Country: JP (occurrence: JP)
  Receive Date: 20131206
  Receipt Date: 20131219
  Transmission Date: 20140711
  Serious: No
  Sender: FDA-Public Use
  Company Number: JP-B.I. PHARMACEUTICALS,INC./RIDGEFIELD-2013-BI-40981YA

PATIENT
  Sex: Male

DRUGS (4)
  1. HARNAL (TAMSULOSIN) ORODISPERSABLE CR [Suspect]
     Dosage: 0.2 MG
     Route: 048
  2. RIVOTRIL (CLONAZEPAM) [Suspect]
     Route: 048
  3. HALCION [Suspect]
     Route: 048
  4. AMLODIN [Concomitant]

REACTIONS (4)
  - Pulse abnormal [Recovered/Resolved]
  - Cold sweat [Recovered/Resolved]
  - Nausea [Recovered/Resolved]
  - Dizziness [Recovered/Resolved]
